FAERS Safety Report 19504575 (Version 2)
Quarter: 2021Q3

REPORT INFORMATION
  Report Type: Report from Study
  Country: IE (occurrence: IE)
  Receive Date: 20210707
  Receipt Date: 20210720
  Transmission Date: 20211014
  Serious: Yes (Hospitalization)
  Sender: FDA-Public Use
  Company Number: IE-PFIZER INC-2021800595

PATIENT
  Weight: 43 kg

DRUGS (38)
  1. VANCOMYCIN [Concomitant]
     Active Substance: VANCOMYCIN
     Dosage: 800 MG, 4X/DAY (OTHER EVERY 6 HRS)
     Dates: start: 20210613, end: 20210614
  2. COTRIMOXAZOLE [Concomitant]
     Active Substance: SULFAMETHOXAZOLE\TRIMETHOPRIM
     Dosage: 480 MG, 2X/DAY
     Dates: start: 20210618, end: 20210620
  3. HEPARIN SODIUM. [Concomitant]
     Active Substance: HEPARIN SODIUM
     Indication: THROMBOSIS PROPHYLAXIS
     Dosage: 2.5 ML, AS NEEDED
     Dates: start: 20210616, end: 20210620
  4. MAGNESIUM SULPHATE [MAGNESIUM SULFATE] [Concomitant]
     Active Substance: MAGNESIUM SULFATE
     Indication: HYPOMAGNESAEMIA
     Dosage: 4 MMOL, AS NEEDED
     Dates: start: 20210610, end: 20210613
  5. METHYLPREDNISOLONE. [Concomitant]
     Active Substance: METHYLPREDNISOLONE
     Indication: ANTIINFLAMMATORY THERAPY
     Dosage: 85 MG
     Dates: start: 20210611, end: 20210613
  6. METHYLPREDNISOLONE. [Concomitant]
     Active Substance: METHYLPREDNISOLONE
     Indication: IMMUNOSUPPRESSION
  7. GEMTUZUMAB OZOGAMICIN [Suspect]
     Active Substance: GEMTUZUMAB OZOGAMICIN
     Indication: ACUTE MYELOID LEUKAEMIA
     Dosage: 4.4 MG (OTHER)
     Route: 042
     Dates: start: 20210531, end: 20210531
  8. VANCOMYCIN [Concomitant]
     Active Substance: VANCOMYCIN
     Dosage: 880 MG, 3X/DAY (OTHER EVERY 8 HRS)
     Dates: start: 20210614, end: 20210621
  9. G?CSF [Concomitant]
     Active Substance: GRANULOCYTE COLONY-STIMULATING FACTOR NOS
     Indication: BONE MARROW EOSINOPHILIC LEUKOCYTE COUNT INCREASED
     Dosage: 215 UG, 1X/DAY (OTHER, EVERY 24HRS)
     Dates: start: 20210610, end: 20210621
  10. CHLORPHENAMINE [Concomitant]
     Active Substance: CHLORPHENIRAMINE MALEATE
     Indication: ANTIALLERGIC THERAPY
     Dosage: 10 MG, 4X/DAY (EVERY 6 HRS)
     Dates: start: 20210621, end: 20210621
  11. TROPICAMIDE. [Concomitant]
     Active Substance: TROPICAMIDE
     Indication: MYDRIASIS
     Dosage: UNK
     Dates: start: 20210621, end: 20210621
  12. CALCIUM GLUCONATE. [Concomitant]
     Active Substance: CALCIUM GLUCONATE
     Indication: BLOOD POTASSIUM INCREASED
  13. MITOXANTRONE HCL [Suspect]
     Active Substance: MITOXANTRONE HYDROCHLORIDE
     Indication: ACUTE MYELOID LEUKAEMIA
     Dosage: 17 MG/M2, 1X/DAY
     Route: 042
     Dates: start: 20210528, end: 20210531
  14. COTRIMOXAZOLE [Concomitant]
     Active Substance: SULFAMETHOXAZOLE\TRIMETHOPRIM
     Indication: ANTIBIOTIC THERAPY
     Dosage: 480 MG, 2X/DAY (OTHER EVERY 12HRS)
     Dates: start: 20210612, end: 20210613
  15. PHOSPHATE SANDOZ [Concomitant]
     Active Substance: SODIUM PHOSPHATE, MONOBASIC, ANHYDROUS
     Indication: BLOOD PHOSPHORUS DECREASED
     Dosage: 43 MMOL, 2X/DAY (EVERY 12 HRS, OTHER)
     Dates: start: 20210612, end: 20210620
  16. PIPERACILLIN. [Concomitant]
     Active Substance: PIPERACILLIN SODIUM
     Indication: ANTIBIOTIC THERAPY
     Dosage: 3.8 G, 4X/DAY (EVERY 6 HRS)
     Dates: start: 20210610, end: 20210611
  17. FUROSEMIDE. [Concomitant]
     Active Substance: FUROSEMIDE
     Indication: DIURETIC THERAPY
     Dosage: 10 MG, 2X/DAY
     Dates: start: 20210610, end: 20210611
  18. VANCOMYCIN [Concomitant]
     Active Substance: VANCOMYCIN
     Dosage: 790 MG, 4X/DAY (OTHER EVERY 6 HRS)
     Dates: start: 20210621, end: 20210622
  19. POSACONAZOLE [Concomitant]
     Active Substance: POSACONAZOLE
     Indication: ANTIFUNGAL PROPHYLAXIS
     Dosage: 300 MG, 2X/DAY (EVERY 12 HRS, OTHER))
     Dates: start: 20210621, end: 20210622
  20. OMEPRAZOLE. [Concomitant]
     Active Substance: OMEPRAZOLE
     Indication: GASTROOESOPHAGEAL REFLUX DISEASE
     Dosage: 40 MG, 1X/DAY (OTHER, EVERY 24HRS)
     Dates: start: 20210614, end: 20210621
  21. KCL RETARD [Concomitant]
     Active Substance: POTASSIUM CHLORIDE
     Indication: BLOOD POTASSIUM DECREASED
     Dosage: 24 MMOL, 2X/DAY (OTHER, EVERY 12HRS)
     Dates: start: 20210615, end: 20210620
  22. ONDANSETRON [Concomitant]
     Active Substance: ONDANSETRON
     Dosage: 4 MG, 3X/DAY (EVERY 8 HRS)
     Dates: start: 20210617, end: 20210617
  23. PARACETAMOL [Concomitant]
     Active Substance: ACETAMINOPHEN
     Indication: PAIN
     Dosage: 645 MG, 4X/DAY (EVERY 6 HRS)
     Dates: start: 20210610, end: 20210612
  24. HEPARIN [Concomitant]
     Active Substance: HEPARIN SODIUM
     Indication: ANTICOAGULANT THERAPY
     Dosage: 10 MMOL, AS NEEDED
     Dates: start: 20210611, end: 20210618
  25. NORADRENALINE [NOREPINEPHRINE] [Concomitant]
     Active Substance: NOREPINEPHRINE
     Indication: HORMONE THERAPY
     Dosage: 6 UG
     Dates: start: 20210610, end: 20210610
  26. ONDANSETRON [Concomitant]
     Active Substance: ONDANSETRON
     Indication: PROPHYLAXIS OF NAUSEA AND VOMITING
     Dosage: 4 MG, 3X/DAY (EVERY 8HRS)
     Dates: start: 20210611, end: 20210613
  27. CALCIUM GLUCONATE. [Concomitant]
     Active Substance: CALCIUM GLUCONATE
     Indication: TOXICITY TO VARIOUS AGENTS
  28. CYTARABINE. [Suspect]
     Active Substance: CYTARABINE
     Indication: ACUTE MYELOID LEUKAEMIA
     Dosage: UNK
  29. VANCOMYCIN [Concomitant]
     Active Substance: VANCOMYCIN
     Dosage: 710 MG, 4X/DAY (OTHER EVERY 6 HRS)
     Dates: start: 20210611, end: 20210613
  30. CLINDAMYCIN. [Concomitant]
     Active Substance: CLINDAMYCIN
     Indication: ANTIBIOTIC THERAPY
     Dosage: 430 MG, 3X/DAY (OTHER, EVERY 8 HRS)
     Dates: start: 20210611, end: 20210616
  31. CALCIUM GLUCONATE. [Concomitant]
     Active Substance: CALCIUM GLUCONATE
     Indication: BLOOD CALCIUM DECREASED
     Dosage: 4.5 MMOL, AS NEEDED
     Dates: start: 20210610, end: 20210610
  32. CYCLIZINE [Concomitant]
     Active Substance: CYCLIZINE
     Indication: PROPHYLAXIS OF NAUSEA AND VOMITING
     Dosage: 50 MG
     Dates: start: 20210610, end: 20210611
  33. VANCOMYCIN [Concomitant]
     Active Substance: VANCOMYCIN
     Indication: ANTIBIOTIC THERAPY
     Dosage: 654 MG, 4X/DAY (OTHER EVERY 6 HRS)
     Dates: start: 20210610, end: 20210611
  34. AMBISOME [Concomitant]
     Active Substance: AMPHOTERICIN B
     Indication: ANTIFUNGAL PROPHYLAXIS
     Dosage: 43 MG, 1X/DAY
     Dates: start: 20210611, end: 20210621
  35. MAGNESIUM [Concomitant]
     Active Substance: MAGNESIUM
     Indication: HYPOMAGNESAEMIA
     Dosage: 8.6 MMOL, AS NEEDED
     Dates: start: 20210610, end: 20210610
  36. ESOMEPRAZOLE. [Concomitant]
     Active Substance: ESOMEPRAZOLE MAGNESIUM
     Indication: GASTRIC PH DECREASED
     Dosage: 40 MG, 1X/DAY
     Dates: start: 20210610, end: 20210613
  37. POTASSIUM CHLORIDE. [Concomitant]
     Active Substance: POTASSIUM CHLORIDE
     Indication: BLOOD POTASSIUM DECREASED
     Dosage: 20 MMOL, AS NEEDED
     Dates: start: 20210610, end: 20210614
  38. VITAMIN K [Concomitant]
     Active Substance: PHYTONADIONE
     Indication: VITAMIN K DECREASED
     Dosage: 10 MG, 1X/DAY
     Dates: start: 20210610, end: 20210614

REACTIONS (1)
  - Febrile neutropenia [Recovered/Resolved]

NARRATIVE: CASE EVENT DATE: 20210624
